FAERS Safety Report 15808490 (Version 1)
Quarter: 2019Q1

REPORT INFORMATION
  Report Type: Spontaneous
  Country: CN (occurrence: CN)
  Receive Date: 20190110
  Receipt Date: 20190110
  Transmission Date: 20190417
  Serious: Yes (Death, Life-Threatening)
  Sender: FDA-Public Use
  Company Number: CN-FRESENIUS KABI-FK201900247

PATIENT
  Age: 25 Year
  Sex: Female

DRUGS (5)
  1. NOREPINEPHRINE. [Concomitant]
     Active Substance: NOREPINEPHRINE
     Indication: PROCEDURAL HYPOTENSION
     Dosage: 0,1 UG/KG/MIN
     Route: 065
  2. DOBUTAMINE [Concomitant]
     Active Substance: DOBUTAMINE\DOBUTAMINE HYDROCHLORIDE
     Indication: PROCEDURAL HYPOTENSION
     Dosage: 5 UG/KG/MIN
     Route: 065
  3. ATROPINE. [Concomitant]
     Active Substance: ATROPINE
     Indication: PROCEDURAL HYPOTENSION
     Route: 065
  4. OXYTOCIN INJECTION (MANUFACTURER UNKNOWN) [Suspect]
     Active Substance: OXYTOCIN
     Indication: PRODUCT USED FOR UNKNOWN INDICATION
     Dosage: 10 U
     Route: 042
  5. EPINEPHRINE. [Concomitant]
     Active Substance: EPINEPHRINE
     Indication: PROCEDURAL HYPOTENSION
     Route: 065

REACTIONS (3)
  - Cardio-respiratory arrest [Unknown]
  - Pulmonary hypertensive crisis [Unknown]
  - Right ventricular failure [Fatal]
